FAERS Safety Report 5151977-0 (Version None)
Quarter: 2006Q4

REPORT INFORMATION
  Report Type: 
  Country: None (occurrence: None)
  Receive Date: 20061109
  Receipt Date: 20061027
  Transmission Date: 20070319
  Serious: Yes (Hospitalization)
  Sender: FDA-Public Use
  Company Number: 2006037141

PATIENT
  Age: 48 Year
  Sex: Female
  Weight: 43 kg

DRUGS (7)
  1. SUTENT [Suspect]
     Indication: RENAL CELL CARCINOMA STAGE UNSPECIFIED
     Dosage: 37.5 MG (37.5 MG, 1 IN 1 D), ORAL
     Route: 048
     Dates: start: 20060126, end: 20060223
  2. MORPHINE SULFATE [Concomitant]
  3. FORLAX          (MACROGOL) [Concomitant]
  4. PRIMEPERAN     (METOCLOPRAMINE) [Concomitant]
  5. MIOREL         (THIOCOLCHICOSIDE) [Concomitant]
  6. ATARAX [Concomitant]
  7. NEUROFEN  (IBUPROFEN) [Concomitant]

REACTIONS (2)
  - ABDOMINAL PAIN [None]
  - GENERAL PHYSICAL HEALTH DETERIORATION [None]
